FAERS Safety Report 10602306 (Version 1)
Quarter: 2014Q4

REPORT INFORMATION
  Report Type: Spontaneous
  Country: JP (occurrence: JP)
  Receive Date: 20141124
  Receipt Date: 20141124
  Transmission Date: 20150529
  Serious: Yes (Other)
  Sender: FDA-Public Use
  Company Number: JP-ASTRAZENECA-2014SE89827

PATIENT
  Age: 79 Year
  Sex: Male

DRUGS (8)
  1. MYSLEE [Concomitant]
     Active Substance: ZOLPIDEM TARTRATE
  2. SEROQUEL [Suspect]
     Active Substance: QUETIAPINE FUMARATE
     Indication: INSOMNIA
     Route: 048
     Dates: start: 201409
  3. TERIBONE [Concomitant]
     Active Substance: TERIPARATIDE ACETATE
  4. SEROQUEL [Suspect]
     Active Substance: QUETIAPINE FUMARATE
     Indication: INSOMNIA
     Route: 048
     Dates: start: 201405
  5. PROMAC [Concomitant]
     Active Substance: NITROFURANTOIN
  6. MAGLAX [Concomitant]
     Active Substance: MAGNESIUM OXIDE
  7. BAYASPIRIN [Concomitant]
     Active Substance: ASPIRIN
  8. ROZEREM [Concomitant]
     Active Substance: RAMELTEON

REACTIONS (7)
  - Decreased appetite [Unknown]
  - Product use issue [Unknown]
  - Asthenia [Unknown]
  - Decreased activity [Unknown]
  - Soft tissue infection [Unknown]
  - Pyrexia [Not Recovered/Not Resolved]
  - Local swelling [Recovered/Resolved]
